FAERS Safety Report 12083519 (Version 1)
Quarter: 2016Q1

REPORT INFORMATION
  Report Type: Spontaneous
  Country: US (occurrence: None)
  Receive Date: 20160216
  Receipt Date: 20160216
  Transmission Date: 20160526
  Serious: No
  Sender: FDA-Public Use
  Company Number: None

PATIENT
  Age: 56 Year
  Sex: Female

DRUGS (1)
  1. HUMIRA [Suspect]
     Active Substance: ADALIMUMAB
     Indication: RHEUMATOID ARTHRITIS
     Dosage: HUMIRA - STRENGTH: 40 DOSE FORM: INJECTABLE - FREQUENCY: QOW ROUTE: SC
     Route: 058
     Dates: start: 20160126

REACTIONS (1)
  - Peripheral swelling [None]
